FAERS Safety Report 15641486 (Version 2)
Quarter: 2019Q1

REPORT INFORMATION
  Report Type: Spontaneous
  Country: SI (occurrence: SI)
  Receive Date: 20181120
  Receipt Date: 20190129
  Transmission Date: 20190417
  Serious: Yes (Hospitalization, Other)
  Sender: FDA-Public Use
  Company Number: SI-BRISTOL-MYERS SQUIBB COMPANY-BMS-2018-107676

PATIENT
  Age: 69 Year
  Sex: Male

DRUGS (1)
  1. OPDIVO [Suspect]
     Active Substance: NIVOLUMAB
     Indication: RENAL CELL CARCINOMA
     Dosage: 3 MG/KG, Q2WK
     Route: 042
     Dates: start: 20171206, end: 20171220

REACTIONS (9)
  - Respiratory failure [Unknown]
  - Cardiac failure [Unknown]
  - Pneumonitis [Unknown]
  - Thrombocytopenia [Unknown]
  - Dyspnoea [Unknown]
  - Renal failure [Unknown]
  - Metastatic neoplasm [Unknown]
  - Anaemia [Unknown]
  - Pulmonary embolism [Unknown]
